FAERS Safety Report 8988557 (Version 1)
Quarter: 2012Q4

REPORT INFORMATION
  Report Type: 
  Country: IT (occurrence: IT)
  Receive Date: 20121228
  Receipt Date: 20121228
  Transmission Date: 20130627
  Serious: Yes (Other)
  Sender: FDA-Public Use
  Company Number: IT-PFIZER INC-2012329909

PATIENT
  Age: 73 Year
  Sex: Female
  Weight: 80 kg

DRUGS (3)
  1. PANTOPRAZOLE [Suspect]
     Dosage: 20 mg, 1x/day
     Route: 048
     Dates: start: 20120701, end: 20120701
  2. LASIX [Concomitant]
     Indication: DIURETIC THERAPY
     Dosage: 25 mg, UNK
     Route: 048
  3. CARDIOASPIRIN [Concomitant]
     Indication: ANTICOAGULANT THERAPY
     Dosage: 100 mg, UNK
     Route: 048

REACTIONS (1)
  - Dysentery [Unknown]
